FAERS Safety Report 6675571-5 (Version None)
Quarter: 2010Q2

REPORT INFORMATION
  Report Type: 
  Country: None (occurrence: None)
  Receive Date: 20100409
  Receipt Date: 20100329
  Transmission Date: 20101027
  Serious: Yes (Other)
  Sender: FDA-Public Use
  Company Number: PHEH2008US02463

PATIENT
  Sex: Male

DRUGS (8)
  1. ZOMETA [Suspect]
  2. LEVAQUIN [Concomitant]
  3. DOXYCYCLINE [Concomitant]
  4. ISOSORBIDE DINITRATE [Concomitant]
  5. COREG [Concomitant]
  6. FUROSEMIDE [Concomitant]
  7. CHEMOTHERAPEUTICS NOS [Concomitant]
  8. RADIATION [Concomitant]

REACTIONS (18)
  - ANXIETY [None]
  - CEREBRAL ISCHAEMIA [None]
  - CHOLECYSTECTOMY [None]
  - DEFORMITY [None]
  - EMOTIONAL DISTRESS [None]
  - GASTROOESOPHAGEAL REFLUX DISEASE [None]
  - GRANULOMA [None]
  - HEPATIC CYST [None]
  - INFECTION [None]
  - NEUROPATHY PERIPHERAL [None]
  - OSTEONECROSIS [None]
  - PAIN [None]
  - PERICARDIAL EFFUSION [None]
  - PLEURAL EFFUSION [None]
  - PROSTATOMEGALY [None]
  - SINUS OPERATION [None]
  - SINUSITIS [None]
  - SPINAL OSTEOARTHRITIS [None]
